FAERS Safety Report 7904943-3 (Version None)
Quarter: 2011Q4

REPORT INFORMATION
  Report Type: 
  Country: None (occurrence: None)
  Receive Date: 20111109
  Receipt Date: 20111102
  Transmission Date: 20120403
  Serious: Yes (Other)
  Sender: FDA-Public Use
  Company Number: PHHY2011US65000

PATIENT
  Sex: Female

DRUGS (3)
  1. GILENYA [Suspect]
     Indication: MULTIPLE SCLEROSIS
     Dosage: 0.5 MG, QD
     Route: 048
     Dates: start: 20110701
  2. CYMBALTA [Concomitant]
     Dosage: 30 MG, UNK
     Dates: start: 20110701
  3. VICODIN [Concomitant]
     Indication: PAIN

REACTIONS (6)
  - HYPOAESTHESIA [None]
  - BREAST SWELLING [None]
  - BREAST PAIN [None]
  - CONDITION AGGRAVATED [None]
  - MUSCULOSKELETAL CHEST PAIN [None]
  - BURNING SENSATION [None]
